FAERS Safety Report 8200362-3 (Version None)
Quarter: 2012Q1

REPORT INFORMATION
  Report Type: 
  Country: None (occurrence: None)
  Receive Date: 20120312
  Receipt Date: 20120301
  Transmission Date: 20120608
  Serious: Yes (Hospitalization)
  Sender: FDA-Public Use
  Company Number: US-US-EMD SERONO, INC.-7085156

PATIENT
  Sex: Male
  Weight: 111 kg

DRUGS (3)
  1. ACTOPLUS MET [Concomitant]
     Indication: TYPE 2 DIABETES MELLITUS
  2. EGRIFTA [Suspect]
  3. EGRIFTA [Suspect]
     Indication: LIPODYSTROPHY ACQUIRED
     Dates: start: 20110801, end: 20111001

REACTIONS (4)
  - HYPERSENSITIVITY [None]
  - SINUSITIS [None]
  - INCORRECT DOSE ADMINISTERED [None]
  - BLOOD GLUCOSE INCREASED [None]
